FAERS Safety Report 4983869-1 (Version None)
Quarter: 2006Q2

REPORT INFORMATION
  Report Type: 
  Country: None (occurrence: None)
  Receive Date: 20060426
  Receipt Date: 20060104
  Transmission Date: 20061013
  Serious: Yes (Hospitalization)
  Sender: FDA-Public Use
  Company Number: US-MERCK-0601USA00380

PATIENT
  Age: 52 Year
  Sex: Female
  Weight: 67 kg

DRUGS (11)
  1. VIOXX [Suspect]
     Indication: GOUTY ARTHRITIS
     Route: 048
     Dates: start: 19990101, end: 20040901
  2. LORCET-HD [Concomitant]
     Route: 065
  3. PREVACID [Concomitant]
     Route: 065
  4. TRIMOX [Concomitant]
     Route: 065
  5. VERAPAMIL HYDROCHLORIDE [Concomitant]
     Route: 065
  6. NEXIUM [Concomitant]
     Route: 065
  7. LOTREL [Concomitant]
     Route: 065
  8. ZOCOR [Concomitant]
     Route: 065
  9. METOPROLOL TARTRATE [Concomitant]
     Route: 065
  10. NORVASC [Concomitant]
     Route: 065
  11. ALLOPURINOL MSD [Concomitant]
     Route: 065

REACTIONS (10)
  - ACUTE CORONARY SYNDROME [None]
  - ACUTE MYOCARDIAL INFARCTION [None]
  - ANGINA UNSTABLE [None]
  - CARDIAC FAILURE CONGESTIVE [None]
  - CARDIOVASCULAR DISORDER [None]
  - CHEST PAIN [None]
  - GASTROINTESTINAL DISORDER [None]
  - HYPERTROPHIC CARDIOMYOPATHY [None]
  - OVERDOSE [None]
  - RENAL FAILURE CHRONIC [None]
